FAERS Safety Report 5774916-8 (Version None)
Quarter: 2008Q2

REPORT INFORMATION
  Report Type: 
  Country: None (occurrence: None)
  Receive Date: 20080612
  Receipt Date: 20080527
  Transmission Date: 20081010
  Serious: Yes (Other)
  Sender: FDA-Public Use
  Company Number: 2008SP010601

PATIENT
  Sex: Female

DRUGS (1)
  1. COPPERTONE MOISTURE MIST TAN CONTINUOUS SPRAY [Suspect]
     Indication: DRUG USE FOR UNKNOWN INDICATION

REACTIONS (3)
  - BURNS THIRD DEGREE [None]
  - FURUNCLE [None]
  - SCAR [None]
